FAERS Safety Report 5092360-6 (Version None)
Quarter: 2006Q3

REPORT INFORMATION
  Report Type: 
  Country: None (occurrence: None)
  Receive Date: 20060825
  Receipt Date: 20060807
  Transmission Date: 20061208
  Serious: Yes (Hospitalization)
  Sender: FDA-Public Use
  Company Number: US200608002462

PATIENT
  Sex: Male
  Weight: 109.3 kg

DRUGS (1)
  1. ZYPREXA [Suspect]
     Dosage: 35 MG
     Dates: start: 20020101, end: 20040101

REACTIONS (8)
  - BLOOD CHOLESTEROL INCREASED [None]
  - CHOLECYSTECTOMY [None]
  - DIABETES MELLITUS [None]
  - HYPERTENSION [None]
  - HYPOGLYCAEMIA [None]
  - OBESITY [None]
  - PRESCRIBED OVERDOSE [None]
  - WEIGHT DECREASED [None]
